FAERS Safety Report 22366221 (Version 1)
Quarter: 2023Q2

REPORT INFORMATION
  Report Type: Spontaneous
  Country: FR (occurrence: FR)
  Receive Date: 20230525
  Receipt Date: 20230525
  Transmission Date: 20230721
  Serious: Yes (Other)
  Sender: FDA-Public Use
  Company Number: FR-002147023-NVSC2023FR111703

PATIENT

DRUGS (3)
  1. RUXOLITINIB [Suspect]
     Active Substance: RUXOLITINIB
     Indication: Myeloproliferative neoplasm
     Dosage: MORE THAN 10 MG, BID
     Route: 065
  2. VENETOCLAX [Suspect]
     Active Substance: VENETOCLAX
     Indication: Myeloproliferative neoplasm
     Dosage: 200-400 MG ON DAYS 1 THROUGH 14 AT 28 BASED ON EXPECTED AND OBSERVED CYTOPENIA
     Route: 048
  3. AZACITIDINE [Suspect]
     Active Substance: AZACITIDINE
     Indication: Myeloproliferative neoplasm
     Dosage: 50-75MG/M2 (DOSE CHANGED TO MANAGE HAEMATOLOGICAL TOXICITY)
     Route: 058

REACTIONS (1)
  - Transformation to acute myeloid leukaemia [Unknown]
